FAERS Safety Report 5860685-X (Version None)
Quarter: 2008Q3

REPORT INFORMATION
  Report Type: 
  Country: None (occurrence: None)
  Receive Date: 20080827
  Receipt Date: 20071008
  Transmission Date: 20090109
  Serious: No
  Sender: FDA-Public Use
  Company Number: US-ABBOTT-07P-163-0421533-00

PATIENT
  Sex: Male
  Weight: 86.26 kg

DRUGS (4)
  1. NIASPAN [Suspect]
     Indication: BLOOD CHOLESTEROL
     Dosage: ONE AT LUNCH, TWO AT BEDTIME
     Route: 048
     Dates: start: 20070801, end: 20071006
  2. BUPROPION HCL [Concomitant]
     Indication: DEPRESSION
  3. BUPROPION HCL [Concomitant]
     Indication: POOR QUALITY SLEEP
  4. EZETIMIBE [Concomitant]
     Indication: DRUG USE FOR UNKNOWN INDICATION

REACTIONS (3)
  - HEADACHE [None]
  - NAUSEA [None]
  - VISION BLURRED [None]
